FAERS Safety Report 5515011-2 (Version None)
Quarter: 2007Q4

REPORT INFORMATION
  Report Type: 
  Country: None (occurrence: None)
  Receive Date: 20071113
  Receipt Date: 20061211
  Transmission Date: 20080405
  Serious: No
  Sender: FDA-Public Use
  Company Number: A0627302A

PATIENT
  Age: 78 Year
  Sex: Female

DRUGS (10)
  1. COREG [Suspect]
     Dosage: 25MG PER DAY
     Route: 048
     Dates: start: 20060201
  2. FUROSEMIDE [Concomitant]
  3. ZOCOR [Concomitant]
  4. SPIRONOLACTONE [Concomitant]
  5. COZAAR [Concomitant]
  6. METFORMIN HCL [Concomitant]
  7. GLIPIZIDE [Concomitant]
  8. DIGITEK [Concomitant]
  9. OMEPRAZOLE [Concomitant]
  10. ANTIBIOTIC [Concomitant]
     Route: 065
     Dates: end: 20061110

REACTIONS (1)
  - COUGH [None]
